FAERS Safety Report 24760049 (Version 1)
Quarter: 2024Q4

REPORT INFORMATION
  Report Type: Other
  Country: DE (occurrence: DE)
  Receive Date: 20241220
  Receipt Date: 20241220
  Transmission Date: 20250114
  Serious: Yes (Life-Threatening)
  Sender: B BRAUN
  Company Number: DE-B.Braun Medical Inc.-2167501

PATIENT
  Age: 41 Year
  Sex: Male

DRUGS (7)
  1. DEXTROSE\LIDOCAINE HYDROCHLORIDE [Suspect]
     Active Substance: DEXTROSE\LIDOCAINE HYDROCHLORIDE
     Indication: Ventricular fibrillation
  2. AMIODARONE [Suspect]
     Active Substance: AMIODARONE
  3. PROPOFOL [Concomitant]
     Active Substance: PROPOFOL
  4. UNSPECIFIED INGREDIENT [Suspect]
     Active Substance: UNSPECIFIED INGREDIENT
  5. MIDAZOLAM [Suspect]
     Active Substance: MIDAZOLAM
  6. MAGNESIUM [Suspect]
     Active Substance: MAGNESIUM
  7. POTASSIUM [Suspect]
     Active Substance: POTASSIUM

REACTIONS (1)
  - Drug ineffective [Unknown]
